FAERS Safety Report 9053764 (Version 1)
Quarter: 2013Q1

REPORT INFORMATION
  Report Type: Spontaneous
  Country: DE (occurrence: DE)
  Receive Date: 20130207
  Receipt Date: 20130207
  Transmission Date: 20140127
  Serious: Yes (Other)
  Sender: FDA-Public Use
  Company Number: DE-ASTRAZENECA-2013SE07711

PATIENT
  Age: 71 Year
  Sex: Female

DRUGS (3)
  1. ARIMIDEX [Suspect]
     Indication: BREAST CANCER
     Route: 048
     Dates: start: 200712
  2. ANTICOAGULANTIA [Concomitant]
  3. ALENDRONIC AICD [Concomitant]

REACTIONS (3)
  - Visual acuity reduced [Unknown]
  - Bone pain [Unknown]
  - Myalgia [Unknown]
